FAERS Safety Report 24020583 (Version 1)
Quarter: 2024Q2

REPORT INFORMATION
  Report Type: Spontaneous
  Country: FI (occurrence: FI)
  Receive Date: 20240627
  Receipt Date: 20240627
  Transmission Date: 20240716
  Serious: Yes (Disabling)
  Sender: FDA-Public Use
  Company Number: None

PATIENT
  Age: 46 Year
  Sex: Female

DRUGS (6)
  1. VENLAFAXINE [Suspect]
     Active Substance: VENLAFAXINE HYDROCHLORIDE
     Indication: Depression
     Dosage: 220 MILLIGRAM, QD (220MG X1 A DAY REGULARLY)
     Route: 048
     Dates: start: 2021, end: 2024
  2. VENLAFAXINE [Suspect]
     Active Substance: VENLAFAXINE HYDROCHLORIDE
     Indication: Pain
  3. LYRICA [Concomitant]
     Active Substance: PREGABALIN
     Indication: Pain
     Dosage: 1X6 DAYS
     Route: 048
     Dates: start: 2008
  4. PANADOL [Concomitant]
     Active Substance: ACETAMINOPHEN
     Indication: Pain
     Dosage: 1500 MILLIGRAM, QD (3XA DAY)
     Route: 048
     Dates: start: 2022
  5. Oxycodone/naloxone krka [Concomitant]
     Indication: Pain
     Dosage: 6 DOSAGE FORM, QD (1 CAPSULE SIX TIMES A DAY)
     Route: 048
     Dates: start: 2019
  6. LEVOTHYROXINE [Concomitant]
     Active Substance: LEVOTHYROXINE\LEVOTHYROXINE SODIUM
     Indication: Hypothyroidism
     Dosage: 100 MICROGRAM, QD (1 A DAY)
     Route: 048
     Dates: start: 2007

REACTIONS (15)
  - Arrhythmia [Recovered/Resolved with Sequelae]
  - Restless legs syndrome [Recovered/Resolved with Sequelae]
  - Breath odour [Recovered/Resolved with Sequelae]
  - Burning sensation [Recovered/Resolved with Sequelae]
  - Restlessness [Recovered/Resolved with Sequelae]
  - Headache [Recovered/Resolved with Sequelae]
  - Hyperhidrosis [Recovered/Resolved with Sequelae]
  - Vomiting [Recovered/Resolved with Sequelae]
  - Fatigue [Recovered/Resolved with Sequelae]
  - Dry mouth [Recovered/Resolved with Sequelae]
  - Tremor [Recovered/Resolved with Sequelae]
  - Constipation [Recovered/Resolved with Sequelae]
  - Nausea [Recovered/Resolved with Sequelae]
  - Abnormal dreams [Recovered/Resolved with Sequelae]
  - Anxiety [Recovered/Resolved with Sequelae]

NARRATIVE: CASE EVENT DATE: 20210101
